FAERS Safety Report 10176439 (Version 2)
Quarter: 2014Q2

REPORT INFORMATION
  Report Type: Spontaneous
  Country: DE (occurrence: DE)
  Receive Date: 20140516
  Receipt Date: 20140528
  Transmission Date: 20141212
  Serious: No
  Sender: FDA-Public Use
  Company Number: DE-PFIZER INC-2014133812

PATIENT
  Sex: Male

DRUGS (1)
  1. CORDAREX [Suspect]
     Dosage: UNK
     Route: 048

REACTIONS (1)
  - Blood pressure increased [Not Recovered/Not Resolved]
